FAERS Safety Report 8385962-2 (Version None)
Quarter: 2012Q2

REPORT INFORMATION
  Report Type: 
  Country: None (occurrence: None)
  Receive Date: 20120525
  Receipt Date: 20120514
  Transmission Date: 20120825
  Serious: Yes (Other)
  Sender: FDA-Public Use
  Company Number: CA-JNJFOC-20110812958

PATIENT
  Sex: Female
  Weight: 74.84 kg

DRUGS (9)
  1. AVAPRO [Concomitant]
     Indication: HYPERTENSION
  2. VITAMIN B-12 [Concomitant]
  3. STELARA [Suspect]
     Indication: PSORIASIS
     Route: 058
     Dates: start: 20110719
  4. SYNTHROID [Concomitant]
  5. HYDROCHLOROTHIAZIDE [Concomitant]
     Indication: HYPERTENSION
  6. GLUCOSAMINE [Concomitant]
  7. FISH OIL [Concomitant]
  8. VENLAFAXINE [Concomitant]
     Indication: DEPRESSION
  9. VITAMIN B6 [Concomitant]

REACTIONS (1)
  - BLEPHARITIS [None]
